FAERS Safety Report 7463176-8 (Version None)
Quarter: 2011Q2

REPORT INFORMATION
  Report Type: 
  Country: None (occurrence: None)
  Receive Date: 20110506
  Receipt Date: 20110504
  Transmission Date: 20111010
  Serious: Yes (Hospitalization)
  Sender: FDA-Public Use
  Company Number: GB-ABBOTT-11P-167-0723555-00

PATIENT
  Sex: Male

DRUGS (1)
  1. HUMIRA [Suspect]
     Indication: RHEUMATOID ARTHRITIS
     Route: 058
     Dates: start: 20100401, end: 20110401

REACTIONS (6)
  - PNEUMONIA [None]
  - DYSPNOEA [None]
  - FATIGUE [None]
  - SINUSITIS [None]
  - RASH MACULAR [None]
  - EAR INFECTION [None]
